FAERS Safety Report 5546303-9 (Version None)
Quarter: 2007Q4

REPORT INFORMATION
  Report Type: 
  Country: None (occurrence: None)
  Receive Date: 20071211
  Receipt Date: 20070206
  Transmission Date: 20080405
  Serious: No
  Sender: FDA-Public Use
  Company Number: US-AMGEN-KDL209932

PATIENT
  Sex: Female

DRUGS (6)
  1. ENBREL [Suspect]
     Indication: RHEUMATOID ARTHRITIS
     Route: 058
     Dates: start: 20010101, end: 20070101
  2. UNSPECIFIED MEDICATION [Concomitant]
  3. UNSPECIFIED MEDICATION [Concomitant]
  4. UNSPECIFIED MEDICATION [Concomitant]
  5. UNSPECIFIED MEDICATION [Concomitant]
  6. UNSPECIFIED MEDICATION [Concomitant]

REACTIONS (1)
  - NEUROPATHY PERIPHERAL [None]
